FAERS Safety Report 8468192-5 (Version None)
Quarter: 2012Q2

REPORT INFORMATION
  Report Type: 
  Country: None (occurrence: None)
  Receive Date: 20120626
  Receipt Date: 20120613
  Transmission Date: 20120825
  Serious: Yes (Death)
  Sender: FDA-Public Use
  Company Number: JP-ROCHE-1080087

PATIENT
  Age: 64 Year
  Sex: Female

DRUGS (5)
  1. RADICUT [Suspect]
     Indication: EMBOLIC STROKE
     Dates: start: 20120116
  2. ACTIVASE [Suspect]
     Indication: EMBOLIC STROKE
     Route: 042
     Dates: start: 20120116, end: 20120116
  3. ARGATROBAN [Suspect]
     Dates: start: 20120117, end: 20120117
  4. RADICUT [Suspect]
  5. ARGATROBAN [Suspect]
     Indication: EMBOLIC STROKE
     Dates: start: 20120117, end: 20120117

REACTIONS (1)
  - CEREBRAL HAEMORRHAGE [None]
